FAERS Safety Report 23379304 (Version 1)
Quarter: 2024Q1

REPORT INFORMATION
  Report Type: Spontaneous
  Country: GB (occurrence: GB)
  Receive Date: 20240108
  Receipt Date: 20240108
  Transmission Date: 20240410
  Serious: Yes (Other)
  Sender: FDA-Public Use
  Company Number: None

PATIENT
  Age: 81 Year
  Weight: 68 kg

DRUGS (12)
  1. CLARITHROMYCIN [Suspect]
     Active Substance: CLARITHROMYCIN
     Route: 065
     Dates: start: 20231218, end: 20231225
  2. OMEPRAZOLE [Concomitant]
     Active Substance: OMEPRAZOLE
     Dates: start: 20230123
  3. FOLIC ACID [Concomitant]
     Active Substance: FOLIC ACID
     Dosage: FOR SIX DAYS A WEEK BUT O,
     Dates: start: 20230123
  4. PREDNISOLONE [Concomitant]
     Active Substance: PREDNISOLONE
     Indication: Chronic obstructive pulmonary disease
     Dosage: IN THE MORNING
     Dates: start: 20231218, end: 20231225
  5. MUPIROCIN [Concomitant]
     Active Substance: MUPIROCIN
     Dosage: APPLY (LONG TERM AS PER DR REDDY),
     Dates: start: 20230123
  6. CHLORPHENIRAMINE MALEATE [Concomitant]
     Active Substance: CHLORPHENIRAMINE MALEATE
     Dosage: EVERY 4-6 HRS
     Dates: start: 20231220
  7. CALCIUM CARBONATE [Concomitant]
     Active Substance: CALCIUM CARBONATE
     Dates: start: 20230123
  8. ATORVASTATIN [Concomitant]
     Active Substance: ATORVASTATIN
     Dates: start: 20230123
  9. RAMIPRIL [Concomitant]
     Active Substance: RAMIPRIL
     Dates: start: 20230123
  10. RIVAROXABAN [Concomitant]
     Active Substance: RIVAROXABAN
     Dosage: TO HELP PREVENT BLOOD,
     Dates: start: 20230123
  11. ALBUTEROL [Concomitant]
     Active Substance: ALBUTEROL
     Indication: Ill-defined disorder
     Dosage: TIME INTERVAL: AS NECESSARY
     Dates: start: 20230123
  12. DOXYCYCLINE [Concomitant]
     Active Substance: DOXYCYCLINE
     Dosage: TWO NOW THEN ONE DAILY,
     Dates: start: 20231220, end: 20231227

REACTIONS (2)
  - Urticaria [Recovering/Resolving]
  - Swelling face [Unknown]
